FAERS Safety Report 18330568 (Version 1)
Quarter: 2020Q3

REPORT INFORMATION
  Report Type: Spontaneous
  Country: US (occurrence: US)
  Receive Date: 20200930
  Receipt Date: 20200930
  Transmission Date: 20201103
  Serious: Yes (Other)
  Sender: FDA-Public Use
  Company Number: US-SHIRE-US202030837

PATIENT
  Age: 43 Year
  Sex: Female
  Weight: 70 kg

DRUGS (4)
  1. BENADRYL [Concomitant]
     Active Substance: DIPHENHYDRAMINE HYDROCHLORIDE
     Indication: PRODUCT USED FOR UNKNOWN INDICATION
  2. LAMOTRIGINE. [Concomitant]
     Active Substance: LAMOTRIGINE
     Indication: TRIGEMINAL NEURALGIA
  3. GAMMAGARD LIQUID [Suspect]
     Active Substance: HUMAN IMMUNOGLOBULIN G
     Indication: CHRONIC INFLAMMATORY DEMYELINATING POLYRADICULONEUROPATHY
     Dosage: 70 MILLIGRAM, OVER TWO DAYS
     Route: 042
  4. PROPANOLOL [Concomitant]
     Active Substance: PROPRANOLOL HYDROCHLORIDE
     Indication: PRODUCT USED FOR UNKNOWN INDICATION

REACTIONS (14)
  - Somnolence [Unknown]
  - Dizziness [Unknown]
  - Device connection issue [Unknown]
  - Inappropriate schedule of product administration [Unknown]
  - Arthralgia [Unknown]
  - Chills [Unknown]
  - Infusion related reaction [Unknown]
  - Shock [Recovered/Resolved]
  - Nausea [Unknown]
  - Fatigue [Unknown]
  - Product administration error [Unknown]
  - Feeling abnormal [Unknown]
  - Hyperhidrosis [Unknown]
  - Condition aggravated [Unknown]

NARRATIVE: CASE EVENT DATE: 20200821
